FAERS Safety Report 25701474 (Version 1)
Quarter: 2025Q3

REPORT INFORMATION
  Report Type: Report from Study
  Country: US (occurrence: US)
  Receive Date: 20250819
  Receipt Date: 20250819
  Transmission Date: 20251021
  Serious: Yes (Hospitalization)
  Sender: UNITED THERAPEUTICS
  Company Number: US-UNITED THERAPEUTICS-UNT-2025-027619

PATIENT
  Sex: Male
  Weight: 8.7 kg

DRUGS (24)
  1. UNITUXIN [Suspect]
     Active Substance: DINUTUXIMAB
     Indication: Neuroblastoma
     Route: 041
  2. UNITUXIN [Suspect]
     Active Substance: DINUTUXIMAB
     Route: 041
  3. UNITUXIN [Suspect]
     Active Substance: DINUTUXIMAB
     Route: 041
  4. UNITUXIN [Suspect]
     Active Substance: DINUTUXIMAB
     Route: 041
  5. UNITUXIN [Suspect]
     Active Substance: DINUTUXIMAB
     Route: 041
  6. CISPLATIN [Suspect]
     Active Substance: CISPLATIN
     Indication: Neuroblastoma
  7. CISPLATIN [Suspect]
     Active Substance: CISPLATIN
  8. CISPLATIN [Suspect]
     Active Substance: CISPLATIN
  9. CISPLATIN [Suspect]
     Active Substance: CISPLATIN
  10. CISPLATIN [Suspect]
     Active Substance: CISPLATIN
  11. ETOPOSIDE [Suspect]
     Active Substance: ETOPOSIDE
     Indication: Neuroblastoma
  12. ETOPOSIDE [Suspect]
     Active Substance: ETOPOSIDE
  13. ETOPOSIDE [Suspect]
     Active Substance: ETOPOSIDE
  14. ETOPOSIDE [Suspect]
     Active Substance: ETOPOSIDE
  15. ETOPOSIDE [Suspect]
     Active Substance: ETOPOSIDE
  16. LEUKINE [Suspect]
     Active Substance: SARGRAMOSTIM
     Indication: Neuroblastoma
  17. LEUKINE [Suspect]
     Active Substance: SARGRAMOSTIM
  18. LEUKINE [Suspect]
     Active Substance: SARGRAMOSTIM
  19. LEUKINE [Suspect]
     Active Substance: SARGRAMOSTIM
  20. LEUKINE [Suspect]
     Active Substance: SARGRAMOSTIM
  21. TOPOTECAN [Concomitant]
     Active Substance: TOPOTECAN HYDROCHLORIDE
     Indication: Neuroblastoma
  22. CYCLOPHOSPHAMIDE [Concomitant]
     Active Substance: CYCLOPHOSPHAMIDE
     Indication: Neuroblastoma
  23. VINCRISTINE SULFATE [Concomitant]
     Active Substance: VINCRISTINE SULFATE
     Indication: Neuroblastoma
  24. DOXORUBICIN HYDROCHLORIDE [Concomitant]
     Active Substance: DOXORUBICIN HYDROCHLORIDE
     Indication: Neuroblastoma

REACTIONS (1)
  - Wound dehiscence [Recovering/Resolving]

NARRATIVE: CASE EVENT DATE: 20250714
